FAERS Safety Report 6148086-0 (Version None)
Quarter: 2009Q2

REPORT INFORMATION
  Report Type: 
  Country: None (occurrence: None)
  Receive Date: 20090408
  Receipt Date: 20090402
  Transmission Date: 20091009
  Serious: Yes (Disabling)
  Sender: FDA-Public Use
  Company Number: B0568928A

PATIENT
  Sex: Female

DRUGS (3)
  1. CLAVAMOX [Suspect]
     Indication: TOOTH INFECTION
     Route: 048
     Dates: start: 20090101
  2. ALPRAZOLAM [Suspect]
     Indication: DRUG USE FOR UNKNOWN INDICATION
     Route: 048
  3. VENLAFAXINE HYDROCHLORIDE [Suspect]
     Route: 048

REACTIONS (2)
  - ANXIETY [None]
  - SOMNOLENCE [None]
